FAERS Safety Report 5265413-7 (Version None)
Quarter: 2007Q1

REPORT INFORMATION
  Report Type: 
  Country: None (occurrence: None)
  Receive Date: 20061214
  Receipt Date: 20050120
  Transmission Date: 20070707
  Serious: Yes (Other)
  Sender: FDA-Public Use
  Company Number: 2005UW01057

PATIENT
  Age: 7 Year
  Sex: Male

DRUGS (2)
  1. PULMICORT RESPULES [Suspect]
     Indication: ASTHMA
  2. XOPENEX [Concomitant]

REACTIONS (4)
  - HALLUCINATION [None]
  - MEDICATION ERROR [None]
  - NIGHTMARE [None]
  - PYREXIA [None]
